FAERS Safety Report 9215372 (Version 2)
Quarter: 2013Q2

REPORT INFORMATION
  Report Type: Spontaneous
  Country: DE (occurrence: DE)
  Receive Date: 20130405
  Receipt Date: 20130528
  Transmission Date: 20140414
  Serious: Yes (Life-Threatening)
  Sender: FDA-Public Use
  Company Number: DE-B.I. PHARMACEUTICALS,INC./RIDGEFIELD-2013-DE-00723DE

PATIENT
  Age: 75 Year
  Sex: Male
  Weight: 77 kg

DRUGS (12)
  1. PRADAXA [Suspect]
     Indication: ATRIAL FIBRILLATION
     Dosage: 300 MG
     Dates: start: 201211
  2. SPIRONOLACTON [Concomitant]
     Dosage: 50 NR
  3. HUMAN INSULIN [Concomitant]
  4. PANGROL [Concomitant]
     Dosage: 80000 NR
  5. TORASEMID [Concomitant]
  6. AMLODIPIN [Concomitant]
     Dosage: 5 NR
  7. METOPROLOL [Concomitant]
  8. SIMVAHEXAL [Concomitant]
     Dosage: 20 NR
  9. METOHEXAL [Concomitant]
     Dosage: 23.75 NR
  10. CO DIOVAN [Concomitant]
     Dosage: 1 ANZ
  11. HUMALOG [Concomitant]
  12. HUMINSULIN [Concomitant]

REACTIONS (3)
  - Myocardial infarction [Unknown]
  - Blood glucose increased [Not Recovered/Not Resolved]
  - Blood glucose fluctuation [Not Recovered/Not Resolved]
